FAERS Safety Report 4466089-9 (Version None)
Quarter: 2004Q3

REPORT INFORMATION
  Report Type: 
  Country: None (occurrence: None)
  Receive Date: 20040930
  Receipt Date: 20040914
  Transmission Date: 20050211
  Serious: Yes (Hospitalization)
  Sender: FDA-Public Use
  Company Number: 2004-BP-07133BP

PATIENT
  Age: 78 Year
  Sex: Male

DRUGS (11)
  1. MICARDIS [Suspect]
     Indication: CARDIAC DISORDER
     Dosage: PO
     Route: 048
     Dates: start: 20030219, end: 20040520
  2. MICARDIS [Suspect]
     Indication: CEREBROVASCULAR ACCIDENT
     Dosage: PO
     Route: 048
     Dates: start: 20030219, end: 20040520
  3. MICARDIS [Suspect]
     Indication: MYOCARDIAL INFARCTION
     Dosage: PO
     Route: 048
     Dates: start: 20030219, end: 20040520
  4. RAMIPRIL [Suspect]
     Indication: CARDIAC DISORDER
     Dosage: PO
     Route: 048
     Dates: start: 20030219, end: 20040520
  5. RAMIPRIL [Suspect]
     Indication: CEREBROVASCULAR ACCIDENT
     Dosage: PO
     Route: 048
     Dates: start: 20030219, end: 20040520
  6. RAMIPRIL [Suspect]
     Indication: MYOCARDIAL INFARCTION
     Dosage: PO
     Route: 048
     Dates: start: 20030219, end: 20040520
  7. SMVASTATIN [Concomitant]
  8. MONOMAX XL [Concomitant]
  9. THYROXINE [Concomitant]
  10. ASPIRIN [Concomitant]
  11. BISOPROLOL FUMARATE [Concomitant]

REACTIONS (2)
  - PALPITATIONS [None]
  - RENAL FAILURE ACUTE [None]
